FAERS Safety Report 13515697 (Version 1)
Quarter: 2017Q2

REPORT INFORMATION
  Report Type: Not Available
  Country: CA (occurrence: CA)
  Receive Date: 20170504
  Receipt Date: 20170504
  Transmission Date: 20170830
  Serious: No
  Sender: FDA-Public Use
  Company Number: CA-ANIPHARMA-2016-CA-000265

PATIENT
  Sex: Female

DRUGS (1)
  1. INDERAL LA [Suspect]
     Active Substance: PROPRANOLOL HYDROCHLORIDE
     Route: 048

REACTIONS (1)
  - Dysphagia [Unknown]
